FAERS Safety Report 17985040 (Version 2)
Quarter: 2021Q1

REPORT INFORMATION
  Report Type: Spontaneous
  Country: US (occurrence: US)
  Receive Date: 20200706
  Receipt Date: 20210131
  Transmission Date: 20210419
  Serious: Yes (Death, Other)
  Sender: FDA-Public Use
  Company Number: US-NAPPMUNDI-USA-2020-0155776

PATIENT
  Age: 54 Year
  Sex: Male

DRUGS (1)
  1. OXYCONTIN [Suspect]
     Active Substance: OXYCODONE HYDROCHLORIDE
     Indication: PRODUCT USED FOR UNKNOWN INDICATION
     Route: 048

REACTIONS (10)
  - Arteriosclerosis [Fatal]
  - Asthenia [Unknown]
  - Drug dependence [Unknown]
  - Visual impairment [Unknown]
  - Seizure [Unknown]
  - Fatigue [Unknown]
  - Cardiac disorder [Unknown]
  - Confusional state [Unknown]
  - Peripheral coldness [Unknown]
  - Mental impairment [Unknown]

NARRATIVE: CASE EVENT DATE: 20171122
